FAERS Safety Report 12535393 (Version 1)
Quarter: 2016Q3

REPORT INFORMATION
  Report Type: Spontaneous
  Country: FR (occurrence: FR)
  Receive Date: 20160707
  Receipt Date: 20160707
  Transmission Date: 20161109
  Serious: Yes (Other)
  Sender: FDA-Public Use
  Company Number: FR-009507513-2003-109130-NL

PATIENT

DRUGS (4)
  1. ORGARAN [Suspect]
     Active Substance: DANAPAROID SODIUM
     Indication: THROMBOSIS
     Dosage: DOSE TEXT: 200-400 U/H TO TREAT THROMBOSIS, AS USED: ANTI_XA
     Route: 042
  2. ORGARAN [Suspect]
     Active Substance: DANAPAROID SODIUM
     Indication: THROMBOSIS PROPHYLAXIS
     Dosage: DOSE TEXT: 600-750 U EVERY 12 HOURS TO PREVENT THROMBOSIS, CONTINUING: YES, AS USED: ANTI_XA
     Route: 058
  3. ORGARAN [Suspect]
     Active Substance: DANAPAROID SODIUM
     Dosage: DOSE TEXT: 170-270 U/H TO PREVENT THROMBOSIS, AS USED: ANTI_XA
     Route: 042
  4. HEPARIN [Concomitant]
     Active Substance: HEPARIN SODIUM

REACTIONS (3)
  - Haemorrhage [Unknown]
  - Administration site haematoma [Unknown]
  - Thrombocytopenia [Unknown]
